FAERS Safety Report 9762680 (Version 2)
Quarter: 2013Q4

REPORT INFORMATION
  Report Type: Spontaneous
  Country: CN (occurrence: CN)
  Receive Date: 20131216
  Receipt Date: 20131230
  Transmission Date: 20140711
  Serious: Yes (Death)
  Sender: FDA-Public Use
  Company Number: CN-ASTRAZENECA-2013SE90859

PATIENT
  Sex: Female

DRUGS (2)
  1. BRILINTA [Suspect]
     Indication: ACUTE CORONARY SYNDROME
     Route: 048
     Dates: start: 201309
  2. RIVAROXABAN [Suspect]
     Indication: ACUTE CORONARY SYNDROME
     Route: 065

REACTIONS (1)
  - Sudden death [Fatal]
